FAERS Safety Report 18000986 (Version 1)
Quarter: 2020Q3

REPORT INFORMATION
  Report Type: Spontaneous
  Country: GR (occurrence: GR)
  Receive Date: 20200709
  Receipt Date: 20200709
  Transmission Date: 20201103
  Serious: Yes (Other)
  Sender: FDA-Public Use
  Company Number: GR-SHIRE-GR202021747

PATIENT

DRUGS (1)
  1. MEZAVANT [Suspect]
     Active Substance: MESALAMINE
     Indication: COLITIS ULCERATIVE
     Dosage: 3TABLETS/PER DAY
     Route: 065
     Dates: start: 20200703

REACTIONS (2)
  - Expired product administered [Unknown]
  - Haematochezia [Unknown]

NARRATIVE: CASE EVENT DATE: 20200704
